FAERS Safety Report 8661820 (Version 5)
Quarter: 2013Q3

REPORT INFORMATION
  Report Type: Report from Study
  Country: JP (occurrence: JP)
  Receive Date: 20120712
  Receipt Date: 20130711
  Transmission Date: 20140515
  Serious: Yes (Other)
  Sender: FDA-Public Use
  Company Number: JP-VERTEX PHARMACEUTICAL INC.-AE-2012-009868

PATIENT
  Age: 49 Year
  Sex: Female

DRUGS (16)
  1. VX-950 (TELAPREVIR) [Suspect]
     Indication: CHRONIC HEPATITIS C
     Dosage: 1500 MG, QD
     Route: 048
     Dates: start: 20120515, end: 20120814
  2. REBETOL [Suspect]
     Indication: CHRONIC HEPATITIS C
     Dosage: 400 MG, QD
     Route: 048
     Dates: start: 20120515, end: 20120604
  3. REBETOL [Suspect]
     Dosage: 200 MG, QD
     Route: 048
     Dates: start: 20120605, end: 20120703
  4. REBETOL [Suspect]
     Dosage: 200 MG, QD
     Route: 048
     Dates: start: 20120821, end: 20120910
  5. REBETOL [Suspect]
     Dosage: 200 MG, QD
     Route: 048
     Dates: start: 20120918, end: 20120924
  6. REBETOL [Suspect]
     Dosage: 200 MG, QD
     Route: 048
     Dates: start: 20121002, end: 20121120
  7. PEGINTRON [Suspect]
     Indication: CHRONIC HEPATITIS C
     Dosage: 1.1 ?G/KG, QW
     Route: 058
     Dates: start: 20120515, end: 20120528
  8. PEGINTRON [Suspect]
     Dosage: 0.7 ?G/KG, QW
     Route: 058
     Dates: start: 20120529, end: 20120807
  9. PEGINTRON [Suspect]
     Dosage: 0.7 ?G/KG, QW
     Route: 058
     Dates: start: 20120821, end: 20120904
  10. PEGINTRON [Suspect]
     Dosage: 0.7 ?G/KG, QW
     Route: 058
     Dates: start: 20120918, end: 20120918
  11. PEGINTRON [Suspect]
     Dosage: 0.7 ?G/KG, QW
     Route: 058
     Dates: start: 20121002, end: 20121113
  12. URSO [Concomitant]
     Dosage: 300 MG, QD
     Route: 048
  13. NORVASC [Concomitant]
     Dosage: 2.5 MG, QD
     Route: 048
     Dates: start: 20060526
  14. ALOSENN [Concomitant]
     Dosage: 1 G, QD
     Route: 048
     Dates: start: 20060526
  15. ACINON [Concomitant]
     Dosage: 300 MG, QD
     Route: 048
     Dates: start: 20060526
  16. MAGLAX [Concomitant]
     Dosage: 990 MG, QD
     Route: 048
     Dates: start: 20060526

REACTIONS (1)
  - Neutrophil count decreased [Recovered/Resolved]
